FAERS Safety Report 12817567 (Version 1)
Quarter: 2016Q4

REPORT INFORMATION
  Report Type: Report from Study
  Country: US (occurrence: US)
  Receive Date: 20161006
  Receipt Date: 20161006
  Transmission Date: 20170207
  Serious: Yes (Death, Life-Threatening, Hospitalization, Other)
  Sender: FDA-Public Use
  Company Number: US-ROCHE-756291

PATIENT
  Age: 69 Year
  Sex: Female
  Weight: 115 kg

DRUGS (5)
  1. BEVACIZUMAB [Suspect]
     Active Substance: BEVACIZUMAB
     Indication: OVARIAN EPITHELIAL CANCER
     Dosage: FREQUENCY WAS NOT REPORTED
     Route: 042
  2. CARBOPLATIN. [Suspect]
     Active Substance: CARBOPLATIN
     Indication: OVARIAN EPITHELIAL CANCER
     Dosage: DOSE AND FREQUENCY WAS NOT REPORTED.
     Route: 065
  3. VELIPARIB [Suspect]
     Active Substance: VELIPARIB
     Dosage: FREQUENCY WA NOT REPORTED.
     Route: 048
  4. PACLITAXEL. [Suspect]
     Active Substance: PACLITAXEL
     Indication: OVARIAN EPITHELIAL CANCER
     Dosage: DOSE AND FREQUENCY WAS NOT REPORTED
     Route: 065
  5. VELIPARIB [Suspect]
     Active Substance: VELIPARIB
     Indication: OVARIAN EPITHELIAL CANCER
     Dosage: FREQUENCY WA NOT REPORTED.
     Route: 048

REACTIONS (12)
  - Platelet count decreased [Unknown]
  - Anaemia [Unknown]
  - Hypocalcaemia [Unknown]
  - International normalised ratio increased [Unknown]
  - Neutrophil count decreased [Unknown]
  - White blood cell count decreased [Unknown]
  - Hypertension [Unknown]
  - Hypoalbuminaemia [Unknown]
  - Hyperglycaemia [Unknown]
  - Sepsis [Fatal]
  - Hypokalaemia [Unknown]
  - Blood bilirubin increased [Unknown]

NARRATIVE: CASE EVENT DATE: 20100727
